APPROVED DRUG PRODUCT: GLUCAGON
Active Ingredient: GLUCAGON
Strength: 1MG/VIAL
Dosage Form/Route: INJECTABLE;INJECTION
Application: A218813 | Product #001 | TE Code: AP
Applicant: CIPLA LTD
Approved: Sep 15, 2025 | RLD: No | RS: No | Type: RX

EXCLUSIVITY:
Code: CGT | Date: Apr 18, 2026